FAERS Safety Report 15663574 (Version 3)
Quarter: 2019Q4

REPORT INFORMATION
  Report Type: Spontaneous
  Country: CA (occurrence: CA)
  Receive Date: 20181128
  Receipt Date: 20191003
  Transmission Date: 20200122
  Serious: Yes (Other)
  Sender: FDA-Public Use
  Company Number: CA-TEVA-2018-CA-980492

PATIENT
  Age: 83 Year
  Sex: Female
  Weight: 102 kg

DRUGS (23)
  1. COVERSYL PLUS [Concomitant]
     Active Substance: INDAPAMIDE\PERINDOPRIL
  2. HUMULIN R CARTRIDGE [Concomitant]
  3. ATENOLOL TABLETS, BP [Concomitant]
     Active Substance: ATENOLOL
  4. LANTUS [Concomitant]
     Active Substance: INSULIN GLARGINE
  5. CITALOPRAM [Suspect]
     Active Substance: CITALOPRAM HYDROBROMIDE
     Indication: ANXIETY
     Dosage: 20 MILLIGRAM DAILY;
     Route: 048
  6. ACTONEL [Concomitant]
     Active Substance: RISEDRONATE SODIUM
  7. CELEXA 20 MG [Concomitant]
  8. CYMBALTA [Concomitant]
     Active Substance: DULOXETINE HYDROCHLORIDE
  9. METFORMIN [Concomitant]
     Active Substance: METFORMIN HYDROCHLORIDE
  10. TYLENOL WITH CODEINE [Concomitant]
     Active Substance: ACETAMINOPHEN\CODEINE PHOSPHATE
  11. MYRBETRIQ [Concomitant]
     Active Substance: MIRABEGRON
  12. LASIX [Concomitant]
     Active Substance: FUROSEMIDE
  13. SYNTHROID [Concomitant]
     Active Substance: LEVOTHYROXINE SODIUM
  14. ASA [Concomitant]
     Active Substance: ASPIRIN
     Route: 065
  15. JAMP-VITAMIN D [Concomitant]
  16. PANTOLOC [Concomitant]
     Active Substance: PANTOPRAZOLE SODIUM
  17. APO-BROMAZEPAM - TAB 1.5 MG [Concomitant]
  18. PALAFER [Concomitant]
     Active Substance: FERROUS FUMARATE
  19. PREMARIN [Concomitant]
     Active Substance: ESTROGENS, CONJUGATED
  20. CITALOPRAM [Suspect]
     Active Substance: CITALOPRAM HYDROBROMIDE
     Indication: AFFECTIVE DISORDER
  21. GABAPENTIN. [Concomitant]
     Active Substance: GABAPENTIN
  22. LIPITOR [Concomitant]
     Active Substance: ATORVASTATIN CALCIUM
  23. NORVASC TAB 5MG [Concomitant]

REACTIONS (4)
  - Anxiety [Recovered/Resolved]
  - Condition aggravated [Recovered/Resolved]
  - Chest pain [Recovered/Resolved]
  - Palpitations [Recovered/Resolved]
